FAERS Safety Report 8614083-6 (Version None)
Quarter: 2012Q3

REPORT INFORMATION
  Report Type: 
  Country: None (occurrence: None)
  Receive Date: 20120823
  Receipt Date: 20120810
  Transmission Date: 20120928
  Serious: Yes (Other)
  Sender: FDA-Public Use
  Company Number: JP-009507513-2012SP036968

PATIENT

DRUGS (15)
  1. PEGINTERFERON ALFA-2B [Suspect]
     Dosage: 1.34 MICROGRAM PER KILOGRAM, QW
     Route: 058
     Dates: start: 20120611
  2. LANSOPRAZOLE [Concomitant]
     Indication: HEPATITIS C
     Dosage: 15 MG, QD
     Route: 048
     Dates: start: 20120423
  3. FERROUS CITRATE [Concomitant]
     Indication: ANAEMIA
     Dosage: 100 MG, QD
     Route: 048
     Dates: start: 20120521
  4. REBETOL [Suspect]
     Dosage: 400 MG, QD
     Route: 048
     Dates: start: 20120507, end: 20120528
  5. LOXONIN [Concomitant]
     Indication: HEPATITIS C
     Dosage: 60 MG PER DAY AS NEEDED,FORMULATION:POR
     Route: 048
     Dates: start: 20120417
  6. OLOPATADINE HCL [Concomitant]
     Indication: PRURITUS
     Dosage: 10 MG, QD
     Route: 048
     Dates: start: 20120514, end: 20120527
  7. REBETOL [Suspect]
     Dosage: 200 MG, QD
     Route: 048
     Dates: start: 20120501, end: 20120506
  8. TELAVIC [Suspect]
     Indication: HEPATITIS C
     Dosage: 1500 MG, QD
     Route: 048
     Dates: start: 20120417, end: 20120528
  9. PEGINTERFERON ALFA-2B [Suspect]
     Indication: HEPATITIS C
     Dosage: 1.34 MICROGRAM PER KILOGRAM, QW
     Route: 058
     Dates: start: 20120417, end: 20120604
  10. EURAX-H [Concomitant]
     Indication: PRURITUS
     Dosage: UNK UNK, PRN
     Route: 061
     Dates: start: 20120514
  11. REBETOL [Suspect]
     Indication: HEPATITIS C
     Dosage: 600 MG, QD
     Route: 048
     Dates: start: 20120417, end: 20120430
  12. REBETOL [Suspect]
     Dosage: 200 MG, QD
     Route: 048
     Dates: start: 20120611
  13. TELAVIC [Suspect]
     Dosage: 1000 MG, QD
     Route: 048
     Dates: start: 20120611, end: 20120709
  14. POLAPREZINC [Concomitant]
     Indication: DECREASED APPETITE
     Dosage: 150 MG, QD
     Route: 048
     Dates: start: 20120507
  15. NOLVADEX [Concomitant]
     Indication: BREAST CANCER
     Dosage: 20 MG, QD
     Route: 048
     Dates: start: 20100401

REACTIONS (1)
  - ANAEMIA [None]
